FAERS Safety Report 5034058-6 (Version None)
Quarter: 2006Q2

REPORT INFORMATION
  Report Type: 
  Country: None (occurrence: None)
  Receive Date: 20060515
  Receipt Date: 20051021
  Transmission Date: 20061013
  Serious: Yes (Other)
  Sender: FDA-Public Use
  Company Number: 143479USA

PATIENT
  Age: 65 Year
  Sex: Male

DRUGS (5)
  1. ZANOSAR [Suspect]
     Indication: NEUROENDOCRINE TUMOUR
     Dates: start: 20051018, end: 20051020
  2. ZANOSAR [Suspect]
     Indication: NEUROENDOCRINE TUMOUR
     Dates: start: 20051021
  3. DOXORUBICIN HCL [Suspect]
     Indication: HEPATIC NEOPLASM
     Dates: start: 20051017
  4. KYTRIL [Concomitant]
  5. DECADRON [Concomitant]

REACTIONS (2)
  - ASPARTATE AMINOTRANSFERASE INCREASED [None]
  - BLOOD BILIRUBIN INCREASED [None]
